FAERS Safety Report 9844760 (Version 2)
Quarter: 2014Q1

REPORT INFORMATION
  Report Type: Spontaneous
  Country: FR (occurrence: None)
  Receive Date: 20140122
  Receipt Date: 20140122
  Transmission Date: 20141002
  Serious: Yes (Hospitalization)
  Sender: FDA-Public Use
  Company Number: B0958158A

PATIENT
  Age: 45 Year
  Sex: Male

DRUGS (6)
  1. PAROXETINE HYDROCHLORIDE [Suspect]
     Indication: DEPRESSION
     Dosage: PER DAY
     Route: 048
     Dates: start: 20131113, end: 20131125
  2. BUPRENORPHINE [Suspect]
     Indication: PRODUCT USED FOR UNKNOWN INDICATION
     Dates: end: 20131114
  3. PRINCI-B FORT [Concomitant]
  4. NIACINAMIDE [Concomitant]
  5. PARACETAMOL [Concomitant]
  6. NEFOPAM [Concomitant]

REACTIONS (3)
  - Thrombocytopenia [None]
  - Haematuria [None]
  - Haemoglobin decreased [None]
